FAERS Safety Report 5681125-X (Version None)
Quarter: 2008Q1

REPORT INFORMATION
  Report Type: 
  Country: None (occurrence: None)
  Receive Date: 20080325
  Receipt Date: 20080311
  Transmission Date: 20080703
  Serious: Yes (Hospitalization, Other)
  Sender: FDA-Public Use
  Company Number: POMP-1000091

PATIENT
  Age: 36 Year
  Sex: Female
  Weight: 67 kg

DRUGS (7)
  1. MYOZYME [Suspect]
     Indication: GLYCOGEN STORAGE DISEASE TYPE II
     Dosage: INTRAVENOUS
     Route: 042
     Dates: start: 20060517, end: 20080220
  2. RANITIDINE HCL [Concomitant]
  3. FENISTIL (DIMETINDENE MALEATE) [Concomitant]
  4. PREDNISOLONE [Concomitant]
  5. EFEROX (LEVOTHYROXINE SODIUM) [Concomitant]
  6. ORGAMETRIL (LYNESTRENOL) [Concomitant]
  7. LYRICA [Concomitant]

REACTIONS (6)
  - COUGH [None]
  - DYSPNOEA [None]
  - HYPERSENSITIVITY [None]
  - INFUSION RELATED REACTION [None]
  - OBSTRUCTIVE AIRWAYS DISORDER [None]
  - STRIDOR [None]
